FAERS Safety Report 7700319-2 (Version None)
Quarter: 2011Q3

REPORT INFORMATION
  Report Type: 
  Country: None (occurrence: None)
  Receive Date: 20110822
  Receipt Date: 20110811
  Transmission Date: 20111222
  Serious: Yes (Hospitalization)
  Sender: FDA-Public Use
  Company Number: PHEH2011US01263

PATIENT
  Sex: Female

DRUGS (10)
  1. LEVOTHYROXINE SODIUM [Concomitant]
     Dosage: 0.112 UG, QD
  2. COMBIPATCH [Suspect]
     Dosage: 0.05/0.14 MG, QW2
     Route: 062
  3. DIAZEPAM [Concomitant]
     Dosage: 5 MG, TID
  4. DOCULASE [Concomitant]
     Dosage: 100 MG, BID
  5. DICYCLOMINE [Concomitant]
     Dosage: 10 MG, DURING MEALTIME
  6. LATEX [Suspect]
     Dosage: UNK UKN, UNK
  7. OXYCODONE HCL [Concomitant]
     Indication: PAIN
     Dosage: 30 MG, 1 DF EVERY FOUR HOUR
  8. OXYCODONE HCL [Concomitant]
     Dosage: 15 MG, 1 DF EVERY FOUR HOUR
  9. BENADRYL [Concomitant]
     Indication: HYPERSENSITIVITY
     Dosage: UNK UKN, PRN
  10. OMEPRAZOLE [Concomitant]
     Dosage: 40 MG, BID

REACTIONS (7)
  - VAGINAL PROLAPSE [None]
  - CYSTOCELE [None]
  - RECTOCELE [None]
  - APPLICATION SITE PRURITUS [None]
  - APPLICATION SITE HYPERSENSITIVITY [None]
  - UTERINE PROLAPSE [None]
  - LATEX ALLERGY [None]
